FAERS Safety Report 6686354-4 (Version None)
Quarter: 2010Q2

REPORT INFORMATION
  Report Type: 
  Country: None (occurrence: None)
  Receive Date: 20100414
  Receipt Date: 20100401
  Transmission Date: 20101027
  Serious: Yes (Hospitalization, Other)
  Sender: FDA-Public Use
  Company Number: A-NJ2010-35059

PATIENT
  Age: 68 Year
  Sex: Female

DRUGS (8)
  1. TRACLEER [Suspect]
     Indication: PULMONARY ARTERIAL HYPERTENSION
     Dosage: 62.5 MG, BID, ORAL
     Route: 048
     Dates: start: 20100304, end: 20100317
  2. SYMBICORT [Concomitant]
  3. SPIRIVA [Concomitant]
  4. CARTIA XT [Concomitant]
  5. COUMADIN [Concomitant]
  6. LANOXIN [Concomitant]
  7. OS-CAL (ERGOCALCIFEROL) [Concomitant]
  8. XOPENEX [Concomitant]

REACTIONS (5)
  - BACK PAIN [None]
  - GENERAL PHYSICAL HEALTH DETERIORATION [None]
  - PLATELET COUNT INCREASED [None]
  - PNEUMONIA [None]
  - PULMONARY OEDEMA [None]
